FAERS Safety Report 21172028 (Version 10)
Quarter: 2023Q1

REPORT INFORMATION
  Report Type: Spontaneous
  Country: PL (occurrence: PL)
  Receive Date: 20220804
  Receipt Date: 20230315
  Transmission Date: 20230417
  Serious: Yes (Hospitalization, Other)
  Sender: FDA-Public Use
  Company Number: PL-MYLANLABS-2022M1082821

PATIENT
  Age: 42 Year
  Sex: Male

DRUGS (30)
  1. MEMANTINE [Interacting]
     Active Substance: MEMANTINE
     Indication: Amnesia
     Dosage: 10 MILLIGRAM, QD
     Route: 048
  2. MEMANTINE [Interacting]
     Active Substance: MEMANTINE
     Indication: Memory impairment
  3. OMEPRAZOLE [Interacting]
     Active Substance: OMEPRAZOLE
     Indication: Myalgia
     Dosage: 40 MG, QD
     Route: 048
  4. OMEPRAZOLE [Interacting]
     Active Substance: OMEPRAZOLE
     Indication: Abdominal pain upper
     Dosage: 80MG,QD(GP DOUBLED DOSE OF OMEPRAZOLE)
     Route: 048
  5. OMEPRAZOLE [Interacting]
     Active Substance: OMEPRAZOLE
     Indication: Acute coronary syndrome
  6. ACETAMINOPHEN\TRAMADOL [Interacting]
     Active Substance: ACETAMINOPHEN\TRAMADOL
     Indication: Abdominal pain upper
     Dosage: 3X75/650 MG (THREE TIMES A DAY)
     Route: 048
  7. ACETAMINOPHEN\TRAMADOL [Interacting]
     Active Substance: ACETAMINOPHEN\TRAMADOL
     Indication: Myalgia
     Dosage: 1 DOSAGE FORM, TID
     Route: 065
  8. ACETAMINOPHEN\TRAMADOL [Interacting]
     Active Substance: ACETAMINOPHEN\TRAMADOL
     Indication: Pain
     Dosage: 1 DOSAGE FORM, Q3D, 3 DOSAGE FORMS
     Route: 048
  9. CLOPIDOGREL [Interacting]
     Active Substance: CLOPIDOGREL BISULFATE
     Indication: Acute coronary syndrome
     Dosage: 75 MILLIGRAM, QD
     Route: 048
  10. TRAMADOL [Interacting]
     Active Substance: TRAMADOL
     Indication: Product used for unknown indication
     Dosage: UNK, ~3 X 75MG/650 MG /DAY
     Route: 065
  11. SERTRALINE [Suspect]
     Active Substance: SERTRALINE HYDROCHLORIDE
     Indication: Depression
     Dosage: UNK
     Route: 065
  12. ITRACONAZOLE [Interacting]
     Active Substance: ITRACONAZOLE
     Indication: Onychomycosis
     Dosage: 200 MILLIGRAM, Q12H
     Route: 048
  13. ITRACONAZOLE [Interacting]
     Active Substance: ITRACONAZOLE
     Indication: Fungal infection
     Dosage: 2 X 200 MG/DAY (AS PRESCRIBED BY DERMATOLOGIST)
     Route: 065
  14. ITRACONAZOLE [Interacting]
     Active Substance: ITRACONAZOLE
     Dosage: 200 MILLIGRAM, QD, 400 MG
     Route: 048
  15. ITRACONAZOLE [Interacting]
     Active Substance: ITRACONAZOLE
     Dosage: 200 MG, Q2D, 2X200 MG WITH 7-DAYS PULSES
     Route: 065
  16. ACETAMINOPHEN [Interacting]
     Active Substance: ACETAMINOPHEN
     Indication: Pain
     Dosage: 1 GRAM, QID
     Route: 065
  17. ACETAMINOPHEN [Interacting]
     Active Substance: ACETAMINOPHEN
     Indication: Abdominal pain upper
     Dosage: 4 X 1000 MG/DAY
     Route: 065
  18. ACETAMINOPHEN [Interacting]
     Active Substance: ACETAMINOPHEN
     Indication: Myalgia
     Dosage: 1000 MILLIGRAM, Q4D
     Route: 065
  19. BUPROPION [Interacting]
     Active Substance: BUPROPION
     Indication: Depression
     Dosage: UNK
     Route: 065
  20. BUPROPION [Interacting]
     Active Substance: BUPROPION
     Indication: Major depression
     Dosage: 300 MILLIGRAM, QD
     Route: 048
  21. VORTIOXETINE [Interacting]
     Active Substance: VORTIOXETINE
     Indication: Depression
     Dosage: UNK
     Route: 065
  22. DROTAVERINE [Interacting]
     Active Substance: DROTAVERINE
     Indication: Pain
     Dosage: 80 MILLIGRAM, TID
     Route: 065
  23. DROTAVERINE [Interacting]
     Active Substance: DROTAVERINE
     Indication: Myalgia
     Dosage: 3 X 80 MG/DAY
     Route: 065
  24. DROTAVERINE [Interacting]
     Active Substance: DROTAVERINE
     Indication: Abdominal pain upper
     Dosage: 80 MILLIGRAM, QD, 240 MG
     Route: 065
  25. ZOFENOPRIL [Concomitant]
     Active Substance: ZOFENOPRIL
     Indication: Acute coronary syndrome
     Dosage: 7.5 MILLIGRAM, QD
     Route: 065
  26. NEBIVOLOL [Concomitant]
     Active Substance: NEBIVOLOL
     Indication: Acute coronary syndrome
     Dosage: 5 MILLIGRAM, QD
     Route: 065
  27. ASPIRIN [Concomitant]
     Active Substance: ASPIRIN
     Indication: Acute coronary syndrome
     Dosage: 150 MILLIGRAM, QD
     Route: 065
  28. OMEPRAZOLE [Interacting]
     Active Substance: OMEPRAZOLE
     Indication: Antiplatelet therapy
     Dosage: 40 MILLIGRAM, QD
     Route: 065
  29. ACETAMINOPHEN [Interacting]
     Active Substance: ACETAMINOPHEN
     Indication: Myalgia
     Dosage: 4 X 1 G
     Route: 065
  30. ACETAMINOPHEN [Interacting]
     Active Substance: ACETAMINOPHEN
     Indication: Abdominal pain upper

REACTIONS (17)
  - Pain [Unknown]
  - Abdominal pain upper [Recovered/Resolved]
  - Myalgia [Recovered/Resolved]
  - Arthralgia [Recovered/Resolved]
  - Abdominal pain [Recovered/Resolved]
  - Nausea [Recovered/Resolved]
  - Inadequate analgesia [Recovered/Resolved]
  - Drug level increased [Recovered/Resolved]
  - Drug ineffective [Recovered/Resolved]
  - Drug interaction [Recovered/Resolved]
  - Medication error [Unknown]
  - Condition aggravated [Recovered/Resolved]
  - Onychomycosis [Recovered/Resolved]
  - Back pain [Recovered/Resolved]
  - Depression [Recovered/Resolved]
  - Product use in unapproved indication [Recovered/Resolved]
  - Off label use [Unknown]
